FAERS Safety Report 19765516 (Version 2)
Quarter: 2021Q3

REPORT INFORMATION
  Report Type: Spontaneous
  Country: ES (occurrence: ES)
  Receive Date: 20210831
  Receipt Date: 20210908
  Transmission Date: 20211014
  Serious: Yes (Disabling, Other)
  Sender: FDA-Public Use
  Company Number: ES-ORGANON-O2108ESP001941

PATIENT
  Age: 79 Year
  Sex: Female

DRUGS (2)
  1. CELESTONE CRONODOSE [Suspect]
     Active Substance: BETAMETHASONE
     Dosage: 3 DOSES ADMINISTERED
     Dates: start: 2021
  2. CELESTONE CRONODOSE [Suspect]
     Active Substance: BETAMETHASONE
     Dosage: LAST DOSE
     Dates: start: 20210831, end: 20210831

REACTIONS (8)
  - Gait inability [Recovered/Resolved]
  - Inflammation [Unknown]
  - Injection site pain [Unknown]
  - Monoplegia [Unknown]
  - Pain in extremity [Not Recovered/Not Resolved]
  - Product administration error [Unknown]
  - Sciatica [Unknown]
  - Pain in extremity [Recovered/Resolved]

NARRATIVE: CASE EVENT DATE: 2021
